FAERS Safety Report 10581744 (Version 4)
Quarter: 2015Q1

REPORT INFORMATION
  Report Type: Spontaneous
  Country: JP (occurrence: JP)
  Receive Date: 20141113
  Receipt Date: 20150129
  Transmission Date: 20150720
  Serious: Yes (Death)
  Sender: FDA-Public Use
  Company Number: JP-PFIZER INC-2014310330

PATIENT
  Age: 73 Year
  Sex: Male
  Weight: 49 kg

DRUGS (36)
  1. 5-FU [Suspect]
     Active Substance: FLUOROURACIL
     Dosage: UNK, CYCLIC
     Route: 040
     Dates: start: 20111018, end: 20111018
  2. SIGMART [Concomitant]
     Active Substance: NICORANDIL
     Dosage: UNK
     Dates: end: 20111016
  3. VECTIBIX [Suspect]
     Active Substance: PANITUMUMAB
     Indication: RECTAL CANCER
     Dosage: 336 MG, 1X/DAY
     Route: 041
     Dates: start: 20111004, end: 20111004
  4. DECADRON [Concomitant]
     Active Substance: DEXAMETHASONE
     Dosage: UNK
     Dates: start: 20110916, end: 20111018
  5. MAGLAX [Concomitant]
     Active Substance: MAGNESIUM OXIDE
     Dosage: UNK
     Dates: end: 20111016
  6. GASMOTIN [Concomitant]
     Active Substance: MOSAPRIDE CITRATE
     Dosage: UNK, POWDER (EXCEPT (DPO))
     Dates: start: 20110912, end: 20111017
  7. FENTOS [Concomitant]
     Active Substance: FENTANYL
     Dosage: 1 MG, DAILY, TAPE (INCLUDING POULTICE)
     Dates: start: 20110929, end: 20111024
  8. DEXALTIN [Concomitant]
     Active Substance: DEXAMETHASONE
     Dosage: UNK
     Dates: start: 20111011
  9. PRIMPERAN [Concomitant]
     Active Substance: METOCLOPRAMIDE HYDROCHLORIDE
     Indication: NAUSEA
     Dosage: 20 MG, UNK
     Dates: start: 20111011
  10. LEVOLEUCOVORIN CALCIUM [Suspect]
     Active Substance: LEVOLEUCOVORIN CALCIUM
     Indication: RECTAL CANCER METASTATIC
     Dosage: UNK, CYCLIC
     Dates: start: 20110916, end: 20110916
  11. WARFARIN [Concomitant]
     Active Substance: WARFARIN
     Dosage: UNK
     Dates: end: 20111016
  12. OPSO [Concomitant]
     Active Substance: MORPHINE HYDROCHLORIDE
     Dosage: UNK, SOLUTION (EXCEPT SYRUP)
     Dates: start: 20111004, end: 20111024
  13. CAMPTO [Suspect]
     Active Substance: IRINOTECAN
     Dosage: 180 MG, 1X/DAY (DOSE REDUCED BY 25%)
     Route: 041
     Dates: start: 20111004, end: 20111004
  14. CAMPTO [Suspect]
     Active Substance: IRINOTECAN
     Dosage: 180 MG, 1X/DAY
     Route: 041
     Dates: start: 20111018, end: 20111018
  15. LYRICA [Concomitant]
     Active Substance: PREGABALIN
     Dosage: UNK
     Dates: end: 20111016
  16. WYPAX [Concomitant]
     Active Substance: LORAZEPAM
     Dosage: UNK
     Dates: start: 20111011, end: 20111017
  17. CAMPTO [Suspect]
     Active Substance: IRINOTECAN
     Indication: RECTAL CANCER
     Dosage: 240 MG, 1X/DAY
     Route: 041
     Dates: start: 20110916, end: 20110916
  18. BAYASPIRIN [Concomitant]
     Active Substance: ASPIRIN
     Dosage: UNK
     Dates: end: 20111016
  19. ZOMETA [Concomitant]
     Active Substance: ZOLEDRONIC ACID
     Dosage: 4 MG, UNK
     Dates: start: 20110929, end: 20110929
  20. LEVOLEUCOVORIN CALCIUM [Suspect]
     Active Substance: LEVOLEUCOVORIN CALCIUM
     Dosage: UNK, CYCLIC
     Dates: start: 20111018, end: 20111018
  21. 5-FU [Suspect]
     Active Substance: FLUOROURACIL
     Indication: RECTAL CANCER METASTATIC
     Dosage: UNK, CYCLIC
     Route: 040
     Dates: start: 20110916, end: 20110916
  22. 5-FU [Suspect]
     Active Substance: FLUOROURACIL
     Dosage: UNK, CYCLIC
     Route: 040
     Dates: start: 20111004, end: 20111004
  23. VECTIBIX [Suspect]
     Active Substance: PANITUMUMAB
     Dosage: 336 MG, 1X/DAY
     Route: 041
     Dates: start: 20111018, end: 20111018
  24. GASCON [Concomitant]
     Active Substance: DIMETHICONE
     Dosage: UNK
     Dates: end: 20111016
  25. CADUET NO.3 [Concomitant]
     Dosage: UNK
     Dates: start: 20110912, end: 20111016
  26. ZOMETA [Concomitant]
     Active Substance: ZOLEDRONIC ACID
     Dosage: 4 MG, UNK
     Dates: start: 20111020, end: 20111020
  27. NOVAMIN [Concomitant]
     Active Substance: PROCHLORPERAZINE MALEATE
     Dosage: UNK
     Dates: start: 20110930, end: 20111007
  28. HIRUDOID [Concomitant]
     Active Substance: GLYCOSAMINOGLYCANS
     Dosage: UNK
     Dates: start: 20111004
  29. LEVOLEUCOVORIN CALCIUM [Suspect]
     Active Substance: LEVOLEUCOVORIN CALCIUM
     Dosage: UNK, CYCLIC
     Dates: start: 20111004, end: 20111004
  30. ALOXI [Concomitant]
     Active Substance: PALONOSETRON HYDROCHLORIDE
     Dosage: UNK
     Dates: start: 20110916, end: 20111018
  31. BASEN [Concomitant]
     Active Substance: VOGLIBOSE
     Dosage: UNK
     Dates: end: 20111016
  32. ARTIST [Concomitant]
     Active Substance: CARVEDILOL
     Dosage: UNK
     Dates: end: 20111016
  33. SENNA [Concomitant]
     Active Substance: SENNA LEAF\SENNOSIDES\SENNOSIDES A AND B
     Dosage: UNK
     Dates: end: 20111016
  34. MAGNESIUM OXIDE. [Concomitant]
     Active Substance: MAGNESIUM OXIDE
     Dosage: UNK
     Dates: start: 20110929, end: 20111017
  35. PYDOXAL [Concomitant]
     Active Substance: PYRIDOXAL
     Dosage: UNK
     Dates: start: 20111011, end: 20111017
  36. HARNAL [Concomitant]
     Active Substance: TAMSULOSIN HYDROCHLORIDE
     Dosage: UNK
     Dates: start: 20111018, end: 20111024

REACTIONS (3)
  - Interstitial lung disease [Fatal]
  - Toxic epidermal necrolysis [Fatal]
  - Staphylococcal scalded skin syndrome [Fatal]

NARRATIVE: CASE EVENT DATE: 20111023
